FAERS Safety Report 5140210-1 (Version None)
Quarter: 2006Q4

REPORT INFORMATION
  Report Type: 
  Country: None (occurrence: None)
  Receive Date: 20061024
  Receipt Date: 20061010
  Transmission Date: 20070319
  Serious: Yes (Other)
  Sender: FDA-Public Use
  Company Number: US-2006-018117

PATIENT
  Age: 53 Year
  Sex: Female

DRUGS (8)
  1. BETASERON [Suspect]
     Indication: MULTIPLE SCLEROSIS
     Dosage: 4 MIU, EVERY 2D, SUBCUTANEOUS
     Route: 058
     Dates: start: 20060522
  2. NISTATIN [Concomitant]
  3. LASIX [Concomitant]
  4. POTASSIUM CHLORIDE [Concomitant]
  5. EFFEXOR [Concomitant]
  6. ZOLOFT [Concomitant]
  7. LIPITOR /NET/ (ATORVASTATIN CALCIUM) [Concomitant]
  8. PREDNISONE TAB [Concomitant]

REACTIONS (9)
  - DIZZINESS [None]
  - FALL [None]
  - HEPATIC STEATOSIS [None]
  - HEPATOMEGALY [None]
  - IMPAIRED WORK ABILITY [None]
  - INFLUENZA LIKE ILLNESS [None]
  - ORAL FUNGAL INFECTION [None]
  - SWELLING [None]
  - URINE OUTPUT DECREASED [None]
